FAERS Safety Report 7757343-3 (Version None)
Quarter: 2011Q3

REPORT INFORMATION
  Report Type: 
  Country: None (occurrence: None)
  Receive Date: 20110916
  Receipt Date: 20110907
  Transmission Date: 20111222
  Serious: Yes (Other)
  Sender: FDA-Public Use
  Company Number: PHHY2011VE79624

PATIENT
  Age: 51 Year
  Sex: Male

DRUGS (2)
  1. METRONIDAZOLE [Suspect]
     Indication: ABDOMINAL PAIN
  2. KETOCONAZOLE [Suspect]
     Indication: TINEA PEDIS
     Dosage: 200 MG, DAILY
     Route: 048

REACTIONS (4)
  - ERYTHEMA [None]
  - SKIN PLAQUE [None]
  - DRUG ERUPTION [None]
  - SKIN HYPERPIGMENTATION [None]
